FAERS Safety Report 4344923-0 (Version None)
Quarter: 2004Q2

REPORT INFORMATION
  Report Type: 
  Country: None (occurrence: None)
  Receive Date: 20040420
  Receipt Date: 20040407
  Transmission Date: 20050107
  Serious: Yes (Hospitalization, Other)
  Sender: FDA-Public Use
  Company Number: 2004016403

PATIENT
  Age: 63 Year
  Sex: Male

DRUGS (4)
  1. ZITHROMAX [Suspect]
     Indication: PERICORONITIS
     Dosage: 500 MG (ONCE), ORAL
     Route: 048
     Dates: start: 20040302, end: 20040302
  2. AMFENAC SODIUM (AMFENAC SODIUM) [Suspect]
     Indication: PAIN
     Dosage: 50 MG (ONCE), ORAL
     Route: 048
     Dates: start: 20040302, end: 20040302
  3. LIDOCAINE HYDROCHLORIDE [Suspect]
     Indication: ILL-DEFINED DISORDER
     Dosage: UNKNOWN
     Dates: start: 20040302, end: 20040302
  4. AZULENE (AZULENE) [Suspect]
     Indication: WOUND
     Dosage: UNKNOWN (ONCE), ORAL
     Route: 048
     Dates: start: 20040302, end: 20040302

REACTIONS (3)
  - DYSPHAGIA [None]
  - DYSPNOEA [None]
  - PHARYNGEAL OEDEMA [None]
